FAERS Safety Report 14248756 (Version 1)
Quarter: 2017Q4

REPORT INFORMATION
  Report Type: Spontaneous
  Country: FR (occurrence: FR)
  Receive Date: 20171204
  Receipt Date: 20171204
  Transmission Date: 20180321
  Serious: Yes (Other)
  Sender: FDA-Public Use
  Company Number: FR-009507513-1712FRA000835

PATIENT
  Age: 91 Year
  Sex: Female

DRUGS (1)
  1. FOSAMAX [Suspect]
     Active Substance: ALENDRONATE SODIUM
     Dosage: 70 MG (TABLET), UNK
     Route: 048
     Dates: start: 2009

REACTIONS (2)
  - Multiple fractures [Unknown]
  - Wrist fracture [Unknown]

NARRATIVE: CASE EVENT DATE: 201708
